FAERS Safety Report 23827311 (Version 1)
Quarter: 2024Q2

REPORT INFORMATION
  Report Type: Spontaneous
  Country: US (occurrence: None)
  Receive Date: 20240506
  Receipt Date: 20240506
  Transmission Date: 20240716
  Serious: Yes (Other)
  Sender: FDA-Public Use
  Company Number: None

PATIENT
  Age: 37 Year
  Sex: Female
  Weight: 80.7 kg

DRUGS (1)
  1. GADAVIST [Suspect]
     Active Substance: GADOBUTROL
     Indication: Magnetic resonance imaging
     Dosage: OTHER FREQUENCY : ONCE;?
     Route: 040
     Dates: start: 20240417, end: 20240417

REACTIONS (5)
  - Urticaria [None]
  - Paraesthesia oral [None]
  - Paraesthesia oral [None]
  - Contrast media reaction [None]
  - Similar reaction on previous exposure to drug [None]

NARRATIVE: CASE EVENT DATE: 20240417
